FAERS Safety Report 12927947 (Version 2)
Quarter: 2017Q1

REPORT INFORMATION
  Report Type: Report from Study
  Country: BR (occurrence: BR)
  Receive Date: 20161110
  Receipt Date: 20170206
  Transmission Date: 20170428
  Serious: Yes (Hospitalization, Other)
  Sender: FDA-Public Use
  Company Number: PHHY2016BR153312

PATIENT
  Age: 19 Year
  Sex: Male
  Weight: 74 kg

DRUGS (2)
  1. TRILEPTAL [Suspect]
     Active Substance: OXCARBAZEPINE
     Dosage: 2 DF, QD
     Route: 048
     Dates: start: 201611
  2. TRILEPTAL [Suspect]
     Active Substance: OXCARBAZEPINE
     Indication: EPILEPSY
     Dosage: 2 DF, QD
     Route: 048
     Dates: start: 2008, end: 2014

REACTIONS (3)
  - Asthenia [Recovering/Resolving]
  - Seizure [Recovering/Resolving]
  - Epilepsy [Recovering/Resolving]

NARRATIVE: CASE EVENT DATE: 20161008
